FAERS Safety Report 4555342-6 (Version None)
Quarter: 2004Q4

REPORT INFORMATION
  Report Type: 
  Country: None (occurrence: None)
  Receive Date: 20041217
  Receipt Date: 20040804
  Transmission Date: 20050328
  Serious: No
  Sender: FDA-Public Use
  Company Number: 2004-BP-06528BP

PATIENT
  Sex: Female
  Weight: 46.3 kg

DRUGS (1)
  1. SPIRIVA [Suspect]
     Dosage: 18 MCG, IH
     Route: 055
     Dates: start: 20040731, end: 20040804

REACTIONS (3)
  - COUGH [None]
  - LARYNGITIS [None]
  - PHARYNGOLARYNGEAL PAIN [None]
